FAERS Safety Report 9753830 (Version 2)
Quarter: 2015Q3

REPORT INFORMATION
  Report Type: Spontaneous
  Country: US (occurrence: US)
  Receive Date: 20131213
  Receipt Date: 20150805
  Transmission Date: 20151125
  Serious: No
  Sender: FDA-Public Use
  Company Number: US-GILEAD-2010-0027422

PATIENT
  Age: 80 Year
  Sex: Female

DRUGS (13)
  1. LETAIRIS [Suspect]
     Active Substance: AMBRISENTAN
     Indication: PULMONARY ARTERIAL HYPERTENSION
     Route: 048
     Dates: start: 20100209
  2. CARDIZEM CD [Concomitant]
     Active Substance: DILTIAZEM HYDROCHLORIDE
  3. WARFARIN [Concomitant]
     Active Substance: WARFARIN
  4. PROTONIX [Concomitant]
     Active Substance: PANTOPRAZOLE SODIUM
  5. CALCIUM [Concomitant]
     Active Substance: CALCIUM
  6. ACTONEL [Concomitant]
     Active Substance: RISEDRONATE SODIUM
  7. DIOVAN [Concomitant]
     Active Substance: VALSARTAN
  8. DIGOXIN. [Concomitant]
     Active Substance: DIGOXIN
  9. LIPITOR [Concomitant]
     Active Substance: ATORVASTATIN CALCIUM
  10. FUROSEMIDE. [Concomitant]
     Active Substance: FUROSEMIDE
  11. POT CL [Concomitant]
  12. METOPROLOL [Concomitant]
     Active Substance: METOPROLOL
  13. TRICOR [Concomitant]
     Active Substance: FENOFIBRATE

REACTIONS (2)
  - Oxygen saturation decreased [Unknown]
  - Fluid retention [Unknown]
